FAERS Safety Report 9297216 (Version 4)
Quarter: 2013Q3

REPORT INFORMATION
  Report Type: Spontaneous
  Country: US (occurrence: US)
  Receive Date: 20130520
  Receipt Date: 20130703
  Transmission Date: 20140515
  Serious: Yes (Hospitalization)
  Sender: FDA-Public Use
  Company Number: US-BIOGENIDEC-2013BI043533

PATIENT
  Age: 53 Year
  Sex: Female

DRUGS (1)
  1. AVONEX [Suspect]
     Indication: MULTIPLE SCLEROSIS
     Route: 030
     Dates: start: 20130506, end: 201305

REACTIONS (5)
  - Pulmonary embolism [Unknown]
  - Ankle fracture [Not Recovered/Not Resolved]
  - Arteriospasm coronary [Recovered/Resolved]
  - Electrocardiogram change [Unknown]
  - Multiple sclerosis relapse [Recovered/Resolved]
